FAERS Safety Report 24663597 (Version 1)
Quarter: 2024Q4

REPORT INFORMATION
  Report Type: Spontaneous
  Country: FI (occurrence: FI)
  Receive Date: 20241126
  Receipt Date: 20241126
  Transmission Date: 20250114
  Serious: Yes (Hospitalization, Other)
  Sender: SUNOVION
  Company Number: FI-RICHTER-2024-GR-009772

PATIENT

DRUGS (4)
  1. ESTRADIOL\NORETHINDRONE ACETATE\RELUGOLIX [Suspect]
     Active Substance: ESTRADIOL\NORETHINDRONE ACETATE\RELUGOLIX
     Indication: Endometriosis
     Dosage: UNK
     Route: 065
     Dates: start: 20240905, end: 20240907
  2. ESTRADIOL\NORETHINDRONE ACETATE\RELUGOLIX [Suspect]
     Active Substance: ESTRADIOL\NORETHINDRONE ACETATE\RELUGOLIX
     Dosage: HALF A DOSE
     Route: 065
     Dates: start: 202409, end: 20241016
  3. PREDNISONE [Concomitant]
     Active Substance: PREDNISONE
     Indication: Systemic lupus erythematosus
     Dosage: 5MG EACH DAY
     Route: 065
  4. PREDNISONE [Concomitant]
     Active Substance: PREDNISONE
     Indication: Collagen disorder

REACTIONS (7)
  - Blindness unilateral [Not Recovered/Not Resolved]
  - Feeling hot [Recovered/Resolved]
  - Abdominal pain lower [Not Recovered/Not Resolved]
  - Burning sensation [Unknown]
  - Feeling abnormal [Unknown]
  - Underdose [Recovered/Resolved]
  - Therapeutic response unexpected [Unknown]

NARRATIVE: CASE EVENT DATE: 20240901
